FAERS Safety Report 8128875-3 (Version None)
Quarter: 2012Q1

REPORT INFORMATION
  Report Type: 
  Country: None (occurrence: None)
  Receive Date: 20120210
  Receipt Date: 20110418
  Transmission Date: 20120608
  Serious: No
  Sender: FDA-Public Use
  Company Number: US-BRISTOL-MYERS SQUIBB COMPANY-15681075

PATIENT
  Age: 62 Year
  Sex: Female

DRUGS (8)
  1. ORENCIA [Suspect]
     Dosage: 3 YEARS
  2. PROTONIX [Concomitant]
  3. HYDROCHLOROTHIAZIDE [Concomitant]
  4. PIROXICAM [Concomitant]
  5. DIOVAN [Concomitant]
  6. MINOCIN [Concomitant]
  7. AMBIEN [Concomitant]
  8. LORAZEPAM [Concomitant]

REACTIONS (3)
  - STOMATITIS [None]
  - HEADACHE [None]
  - WEIGHT INCREASED [None]
